FAERS Safety Report 10782380 (Version 1)
Quarter: 2015Q1

REPORT INFORMATION
  Report Type: Spontaneous
  Country: US (occurrence: US)
  Receive Date: 20150210
  Receipt Date: 20150210
  Transmission Date: 20150721
  Serious: No
  Sender: FDA-Public Use
  Company Number: US-GLAXOSMITHKLINE-A1086797A

PATIENT

DRUGS (2)
  1. LAMICTAL XR [Suspect]
     Active Substance: LAMOTRIGINE
     Indication: SEIZURE
     Dosage: 200MG AT UNKNOWN DOSING STARTED 03MAR2011300MG AT UNKNOWN DOSING STARTED 26NOV2013
     Route: 065
     Dates: start: 20110303
  2. LAMICTAL XR [Suspect]
     Active Substance: LAMOTRIGINE
     Dates: start: 20110303

REACTIONS (2)
  - Upper respiratory tract infection [Unknown]
  - Malaise [Unknown]
